FAERS Safety Report 6653390-3 (Version None)
Quarter: 2010Q1

REPORT INFORMATION
  Report Type: 
  Country: None (occurrence: None)
  Receive Date: 20100326
  Receipt Date: 20100323
  Transmission Date: 20100710
  Serious: Yes (Hospitalization)
  Sender: FDA-Public Use
  Company Number: FR-ROCHE-692782

PATIENT
  Age: 21 Year
  Sex: Male

DRUGS (4)
  1. RIVOTRIL [Suspect]
     Indication: DRUG USE FOR UNKNOWN INDICATION
     Route: 048
     Dates: start: 20090801
  2. ZYPREXA [Suspect]
     Indication: DRUG USE FOR UNKNOWN INDICATION
     Dosage: DRUG REPORTED: ZYPREXIA
     Route: 048
     Dates: start: 20090801
  3. RITALIN [Suspect]
     Dosage: DRUG REPORTED: RITALINE
     Route: 048
     Dates: start: 20090801
  4. AERIUS [Suspect]
     Indication: DRUG USE FOR UNKNOWN INDICATION
     Route: 048
     Dates: start: 20090801

REACTIONS (1)
  - PULMONARY EMBOLISM [None]
